FAERS Safety Report 16291291 (Version 3)
Quarter: 2020Q1

REPORT INFORMATION
  Report Type: Spontaneous
  Country: US (occurrence: US)
  Receive Date: 20190509
  Receipt Date: 20200122
  Transmission Date: 20200409
  Serious: No
  Sender: FDA-Public Use
  Company Number: US-PFIZER INC-2019194865

PATIENT
  Age: 66 Year
  Sex: Female
  Weight: 95 kg

DRUGS (2)
  1. XELJANZ XR [Suspect]
     Active Substance: TOFACITINIB CITRATE
     Indication: RHEUMATOID ARTHRITIS
     Dosage: 11 MG, DAILY
     Route: 048
     Dates: start: 2018
  2. NEURONTIN [Concomitant]
     Active Substance: GABAPENTIN
     Indication: NERVE INJURY
     Dosage: UNK (UNSURE OF DOSE BUT IT IS A HIGH DOSE)
     Dates: start: 20190418, end: 20190421

REACTIONS (5)
  - Pain [Not Recovered/Not Resolved]
  - Dysgraphia [Unknown]
  - Condition aggravated [Not Recovered/Not Resolved]
  - Nerve compression [Unknown]
  - Rash [Unknown]
